FAERS Safety Report 8060565-8 (Version None)
Quarter: 2012Q1

REPORT INFORMATION
  Report Type: 
  Country: None (occurrence: None)
  Receive Date: 20120119
  Receipt Date: 20120119
  Transmission Date: 20120608
  Serious: No
  Sender: FDA-Public Use
  Company Number: None

PATIENT
  Age: 47 Year
  Sex: Male
  Weight: 82.5547 kg

DRUGS (1)
  1. MORPHINE SULFATE [Suspect]
     Indication: PAIN
     Dosage: INTRAVENOUS;2.0 MG
     Route: 042
     Dates: start: 20120108, end: 20120108

REACTIONS (1)
  - INJECTION SITE PAIN [None]
